FAERS Safety Report 7283122-X (Version None)
Quarter: 2011Q1

REPORT INFORMATION
  Report Type: 
  Country: None (occurrence: None)
  Receive Date: 20110209
  Receipt Date: 20100913
  Transmission Date: 20110831
  Serious: No
  Sender: FDA-Public Use
  Company Number: A0881512A

PATIENT
  Age: 70 Year
  Sex: Female

DRUGS (1)
  1. PAXIL CR [Suspect]
     Indication: ANXIETY
     Dosage: 10MG IN THE MORNING
     Route: 048

REACTIONS (1)
  - DRUG INEFFECTIVE [None]
